FAERS Safety Report 26106287 (Version 3)
Quarter: 2025Q4

REPORT INFORMATION
  Report Type: Report from Study
  Country: US (occurrence: None)
  Receive Date: 20251201
  Receipt Date: 20251224
  Transmission Date: 20260117
  Serious: Yes (Other)
  Sender: UCB
  Company Number: US-UCBSA-2025013441

PATIENT
  Age: 14 Year
  Weight: 38.5 kg

DRUGS (6)
  1. FENFLURAMINE [Suspect]
     Active Substance: FENFLURAMINE
     Indication: Lennox-Gastaut syndrome
     Dosage: 6 MILLILITER, 2X/DAY (BID)
  2. FENFLURAMINE [Suspect]
     Active Substance: FENFLURAMINE
     Indication: Seizure
     Dosage: 26.4MG/DAY
  3. FENFLURAMINE [Suspect]
     Active Substance: FENFLURAMINE
     Dosage: 6 MILLILITER, 2X/DAY (BID)
  4. FENFLURAMINE [Suspect]
     Active Substance: FENFLURAMINE
     Dosage: 6 MILLILITER, 2X/DAY (BID)
  5. FENFLURAMINE [Suspect]
     Active Substance: FENFLURAMINE
     Dosage: 6 MILLILITER, 2X/DAY (BID)
  6. FENFLURAMINE [Suspect]
     Active Substance: FENFLURAMINE
     Dosage: 6.5 MILLILITER, 2X/DAY (BID)

REACTIONS (7)
  - Cholecystectomy [Not Recovered/Not Resolved]
  - Mitral valve incompetence [Unknown]
  - Weight decreased [Not Recovered/Not Resolved]
  - Agitation [Unknown]
  - Central venous catheterisation [Not Recovered/Not Resolved]
  - Off label use [Unknown]
  - Overdose [Unknown]
